FAERS Safety Report 9207565 (Version 1)
Quarter: 2013Q2

REPORT INFORMATION
  Report Type: Report from Study
  Country: US (occurrence: US)
  Receive Date: 20130403
  Receipt Date: 20130403
  Transmission Date: 20140414
  Serious: Yes (Other)
  Sender: FDA-Public Use
  Company Number: US-TEVA-395349USA

PATIENT
  Age: 2 Year
  Sex: 0

DRUGS (1)
  1. RIBAVIRIN [Suspect]
     Dosage: THE SUSPECT MEDICATION WAS TAKEN BY THE FATHER
     Route: 065

REACTIONS (3)
  - Haemorrhage [Unknown]
  - Stomatitis [Unknown]
  - Live birth [Unknown]
